FAERS Safety Report 10788637 (Version 1)
Quarter: 2015Q1

REPORT INFORMATION
  Report Type: Spontaneous
  Country: ES (occurrence: ES)
  Receive Date: 20150212
  Receipt Date: 20150212
  Transmission Date: 20150721
  Serious: Yes (Hospitalization, Other)
  Sender: FDA-Public Use
  Company Number: ES-ABBVIE-15K-144-1343976-00

PATIENT
  Age: 47 Year
  Sex: Female

DRUGS (2)
  1. HUMIRA [Suspect]
     Active Substance: ADALIMUMAB
     Route: 058
     Dates: start: 201308, end: 201409
  2. HUMIRA [Suspect]
     Active Substance: ADALIMUMAB
     Indication: PSORIASIS
     Route: 058
     Dates: start: 2012, end: 2013

REACTIONS (8)
  - Demyelination [Recovering/Resolving]
  - Hypoaesthesia [Recovering/Resolving]
  - Vertigo [Recovered/Resolved]
  - Diplopia [Recovered/Resolved]
  - Ophthalmoplegia [Recovering/Resolving]
  - Cytomegalovirus test positive [Unknown]
  - Herpes simplex serology positive [Unknown]
  - Multiple sclerosis [Unknown]

NARRATIVE: CASE EVENT DATE: 201409
